FAERS Safety Report 20355139 (Version 3)
Quarter: 2022Q2

REPORT INFORMATION
  Report Type: Spontaneous
  Country: JP (occurrence: JP)
  Receive Date: 20220120
  Receipt Date: 20220624
  Transmission Date: 20220720
  Serious: Yes (Hospitalization)
  Sender: FDA-Public Use
  Company Number: JP-VIIV HEALTHCARE LIMITED-JP2022JPN009272

PATIENT

DRUGS (4)
  1. JULUCA [Suspect]
     Active Substance: DOLUTEGRAVIR SODIUM\RILPIVIRINE HYDROCHLORIDE
     Indication: HIV infection
     Dosage: 1 DF, 1D
     Route: 048
     Dates: start: 202109
  2. DARUNAVIR [Concomitant]
     Active Substance: DARUNAVIR
     Indication: HIV infection
     Dosage: UNK
     Dates: start: 2021
  3. NORVIR [Concomitant]
     Active Substance: RITONAVIR
     Indication: HIV infection
     Dosage: UNK
     Dates: start: 2021
  4. DESCOVY [Concomitant]
     Active Substance: EMTRICITABINE\TENOFOVIR ALAFENAMIDE FUMARATE
     Indication: HIV infection
     Dosage: UNK
     Dates: start: 2021

REACTIONS (2)
  - Blood HIV RNA increased [Unknown]
  - Viral mutation identified [Unknown]
